FAERS Safety Report 16797781 (Version 1)
Quarter: 2019Q3

REPORT INFORMATION
  Report Type: Spontaneous
  Country: US (occurrence: US)
  Receive Date: 20190912
  Receipt Date: 20190912
  Transmission Date: 20191005
  Serious: Yes (Other)
  Sender: FDA-Public Use
  Company Number: US-LUPIN PHARMACEUTICALS INC.-2019-05776

PATIENT
  Age: 75 Year
  Sex: Female
  Weight: 64 kg

DRUGS (1)
  1. OXYCODONE [Suspect]
     Active Substance: OXYCODONE
     Indication: PRODUCT USED FOR UNKNOWN INDICATION
     Dosage: UNK
     Route: 065

REACTIONS (4)
  - Rash macular [Unknown]
  - Diffuse cutaneous mastocytosis [Unknown]
  - Drug hypersensitivity [Unknown]
  - Systemic mastocytosis [Unknown]
